FAERS Safety Report 7463466-9 (Version None)
Quarter: 2011Q2

REPORT INFORMATION
  Report Type: 
  Country: None (occurrence: None)
  Receive Date: 20110506
  Receipt Date: 20110427
  Transmission Date: 20111010
  Serious: Yes (Other)
  Sender: FDA-Public Use
  Company Number: US-B.I. PHARMACEUTICALS,INC./RIDGEFIELD-2011-BP-07805BP

PATIENT
  Sex: Female

DRUGS (12)
  1. PRADAXA [Suspect]
     Dosage: 300 MG
     Dates: start: 20110301, end: 20110303
  2. CALCIUM SUPPLEMENT [Concomitant]
     Route: 048
  3. OXYCODONE/ACETAMINOPHEN [Concomitant]
     Dosage: 120 MG
     Route: 048
  4. METOPROLOL TARTRATE [Concomitant]
     Dosage: 100 MG
     Route: 048
  5. ALDACTONE [Concomitant]
     Dosage: 25 MG
     Route: 048
  6. KLONOPIN [Concomitant]
     Dosage: 1 MG
     Route: 048
  7. VITAMIN D [Concomitant]
     Route: 048
  8. VITAMIN B6 [Concomitant]
     Route: 048
  9. AMIODARONE HCL [Concomitant]
     Dosage: 200 MG
     Route: 048
  10. LOVASTATIN [Concomitant]
     Route: 048
  11. FENTANYL [Concomitant]
     Route: 061
  12. VITAMIN E [Concomitant]
     Route: 048

REACTIONS (7)
  - CHEST PAIN [None]
  - SWELLING FACE [None]
  - THROAT IRRITATION [None]
  - DIZZINESS [None]
  - CARDIAC FAILURE CONGESTIVE [None]
  - RENAL FAILURE ACUTE [None]
  - DYSPEPSIA [None]
